FAERS Safety Report 7831168-2 (Version None)
Quarter: 2011Q4

REPORT INFORMATION
  Report Type: 
  Country: None (occurrence: None)
  Receive Date: 20111021
  Receipt Date: 20111018
  Transmission Date: 20120403
  Serious: No
  Sender: FDA-Public Use
  Company Number: US-PFIZER INC-2011251323

PATIENT
  Sex: Male
  Weight: 65.76 kg

DRUGS (8)
  1. DIGOXIN [Concomitant]
     Dosage: 125MG ONE TABLET ON MONDAY, WEDNESDAY AND FRIDAY
     Route: 048
  2. AMLODIPINE [Concomitant]
     Dosage: 5 MG, DAILY
     Route: 048
  3. FUROSEMIDE [Concomitant]
     Indication: HYPERTENSION
     Dosage: 20 MG, DAILY
     Route: 048
  4. PROBENECID [Concomitant]
     Indication: GOUT
     Dosage: 500 MG, DAILY
  5. ISOSORBIDE [Concomitant]
     Dosage: 30 MG, 2X/DAY
     Route: 048
  6. CARVEDILOL [Concomitant]
     Dosage: 12.5 MG, DAILY
     Route: 048
  7. WARFARIN SODIUM [Concomitant]
     Indication: ANTICOAGULANT THERAPY
     Dosage: 500 MG, UNK
  8. NICOTROL [Suspect]
     Indication: SMOKING CESSATION THERAPY
     Dosage: UNK, 6X/DAY
     Dates: start: 20111012

REACTIONS (2)
  - DRUG INEFFECTIVE [None]
  - DYSGEUSIA [None]
